FAERS Safety Report 19485339 (Version 1)
Quarter: 2021Q3

REPORT INFORMATION
  Report Type: Spontaneous
  Country: TR (occurrence: TR)
  Receive Date: 20210702
  Receipt Date: 20210702
  Transmission Date: 20211014
  Serious: Yes (Death, Life-Threatening, Hospitalization)
  Sender: FDA-Public Use
  Company Number: TR-TEVA-2021-TR-1928597

PATIENT
  Age: 16 Year
  Sex: Male

DRUGS (4)
  1. ACETYLSALICYLIC ACID [Suspect]
     Active Substance: ASPIRIN
     Indication: POISONING DELIBERATE
     Dosage: HIS FATHER HAD NOTICED MISSING TWO OF EACH OF HIS DRUGS
     Route: 065
  2. RAMIPRIL. [Suspect]
     Active Substance: RAMIPRIL
     Indication: POISONING DELIBERATE
     Dosage: HIS FATHER HAD NOTICED MISSING TWO OF EACH OF HIS DRUGS
     Route: 065
  3. METOPROLOL. [Suspect]
     Active Substance: METOPROLOL
     Indication: POISONING DELIBERATE
     Dosage: HIS FATHER HAD NOTICED MISSING TWO OF EACH OF HIS DRUGS
     Route: 065
  4. VERAPAMIL/TRANDOLAPRIL [Suspect]
     Active Substance: TRANDOLAPRIL\VERAPAMIL
     Indication: POISONING DELIBERATE
     Dosage: HIS FATHER HAD NOTICED MISSING TWO OF EACH OF HIS DRUGS
     Route: 065

REACTIONS (8)
  - Cardiac arrest [Unknown]
  - Loss of consciousness [Unknown]
  - Hypotension [Unknown]
  - Poisoning deliberate [Fatal]
  - Cardio-respiratory arrest [Fatal]
  - Brain death [Fatal]
  - Dizziness [Unknown]
  - Headache [Unknown]
